FAERS Safety Report 23064621 (Version 1)
Quarter: 2023Q4

REPORT INFORMATION
  Report Type: Spontaneous
  Country: US (occurrence: None)
  Receive Date: 20231013
  Receipt Date: 20231013
  Transmission Date: 20240109
  Serious: Yes (Hospitalization)
  Sender: FDA-Public Use
  Company Number: None

PATIENT
  Age: 75 Year
  Sex: Male
  Weight: 73 kg

DRUGS (1)
  1. EMPAGLIFLOZIN [Suspect]
     Active Substance: EMPAGLIFLOZIN
     Dosage: FREQUENCY : EVERY DAY BEFORE NOON;?
     Route: 048
     Dates: start: 20220218, end: 20221113

REACTIONS (3)
  - Nausea [None]
  - Vomiting [None]
  - Diabetic ketoacidosis [None]

NARRATIVE: CASE EVENT DATE: 20221113
